FAERS Safety Report 4333653-7 (Version None)
Quarter: 2004Q2

REPORT INFORMATION
  Report Type: 
  Country: None (occurrence: None)
  Receive Date: 20040402
  Receipt Date: 20040324
  Transmission Date: 20050107
  Serious: Yes (Hospitalization, Other)
  Sender: FDA-Public Use
  Company Number: 2004020205

PATIENT
  Age: 4 Year
  Sex: Female
  Weight: 15.4223 kg

DRUGS (3)
  1. BENADRYL [Suspect]
     Indication: URTICARIA
     Dosage: SEE IMAGE
     Route: 042
     Dates: start: 20030325, end: 20030325
  2. BENADRYL [Suspect]
     Indication: URTICARIA
     Dosage: SEE IMAGE
     Route: 042
     Dates: start: 20030325, end: 20040325
  3. ATARAX [Suspect]
     Indication: URTICARIA
     Dates: end: 20030101

REACTIONS (11)
  - AGITATION [None]
  - BRUXISM [None]
  - CONVULSION [None]
  - DRUG INEFFECTIVE [None]
  - DYSKINESIA [None]
  - HALLUCINATION [None]
  - INSOMNIA [None]
  - MEDICATION ERROR [None]
  - MUSCLE TWITCHING [None]
  - RASH [None]
  - SWELLING FACE [None]
